FAERS Safety Report 6112965-0 (Version None)
Quarter: 2009Q1

REPORT INFORMATION
  Report Type: 
  Country: None (occurrence: None)
  Receive Date: 20090312
  Receipt Date: 20090304
  Transmission Date: 20090719
  Serious: Yes (Hospitalization)
  Sender: FDA-Public Use
  Company Number: US-TEVA-184148USA

PATIENT
  Sex: Female

DRUGS (1)
  1. GLIBENCLAMIDE 1.25 MG, 2.5 MG + 5 MG TABLETS [Suspect]
     Dates: start: 20090101

REACTIONS (6)
  - ABDOMINAL PAIN UPPER [None]
  - DIZZINESS [None]
  - FEELING COLD [None]
  - HEART RATE DECREASED [None]
  - LACTIC ACIDOSIS [None]
  - MYALGIA [None]
